FAERS Safety Report 8736619 (Version 2)
Quarter: 2012Q4

REPORT INFORMATION
  Report Type: 
  Country: GB (occurrence: GB)
  Receive Date: 20120822
  Receipt Date: 20120905
  Transmission Date: 20130627
  Serious: Yes (Death, Other)
  Sender: FDA-Public Use
  Company Number: GB-ALEXION PHARMACEUTICALS INC.-A201201535

PATIENT
  Age: 8 Year
  Sex: Female
  Weight: 32.5 kg

DRUGS (11)
  1. SOLIRIS 300MG [Suspect]
     Indication: HAEMOLYTIC URAEMIC SYNDROME
     Dosage: 600 mg, single
     Route: 042
     Dates: start: 20120810, end: 20120810
  2. RANITIDINE [Concomitant]
     Indication: PROPHYLAXIS
     Dosage: 25 mg, qd
     Route: 042
     Dates: start: 20120809, end: 20120811
  3. ALFENTANIL [Concomitant]
     Indication: ANALGESIC THERAPY
     Dosage: 1 mcg/kg/min
     Route: 042
     Dates: start: 20120809, end: 20120811
  4. ALFENTANIL [Concomitant]
     Indication: SEDATION
  5. MIDAZOLAM [Concomitant]
     Indication: SEDATION
     Dosage: 0.2 mg/kg/hr
     Route: 042
     Dates: start: 20120809, end: 20120811
  6. PHENYTOIN [Concomitant]
     Indication: CONVULSION PROPHYLAXIS
     Dosage: 80 mg, bid
     Route: 042
     Dates: start: 20120809, end: 20120811
  7. PARACETAMOL [Concomitant]
     Indication: PYREXIA
     Dosage: 480 mg, prn
     Route: 042
     Dates: start: 20120809, end: 20120809
  8. MAGNESIUM SULPHATE [Concomitant]
     Indication: PRODUCT USED FOR UNKNOWN INDICATION
     Dosage: 6.5 mmol stat
     Route: 042
     Dates: start: 20120810, end: 20120811
  9. BENZYLPENICILLIN [Concomitant]
     Indication: PROPHYLAXIS
     Dosage: 800 mg x 2, UNK
     Route: 042
     Dates: end: 20120811
  10. ROCURONIUM [Concomitant]
     Indication: ANAESTHESIA
     Dosage: 30 mg, prn
     Route: 042
     Dates: start: 20120809, end: 20120810
  11. MANNITOL [Concomitant]
     Dosage: 66 ml, prn
     Route: 042
     Dates: start: 20120809, end: 20120811

REACTIONS (7)
  - Escherichia infection [Fatal]
  - Haemolytic uraemic syndrome [Fatal]
  - Condition aggravated [Fatal]
  - Bradycardia [Unknown]
  - Pupil fixed [Not Recovered/Not Resolved]
  - Cerebral infarction [Not Recovered/Not Resolved]
  - Intracranial pressure increased [Not Recovered/Not Resolved]
